FAERS Safety Report 12316640 (Version 1)
Quarter: 2016Q2

REPORT INFORMATION
  Report Type: Spontaneous
  Country: US (occurrence: US)
  Receive Date: 20160429
  Receipt Date: 20160429
  Transmission Date: 20160815
  Serious: No
  Sender: FDA-Public Use
  Company Number: US-009507513-1604USA017931

PATIENT
  Age: 73 Year
  Sex: Female
  Weight: 81.65 kg

DRUGS (15)
  1. FIBERCON [Suspect]
     Active Substance: CALCIUM POLYCARBOPHIL
     Indication: GASTROINTESTINAL MOTILITY DISORDER
     Dosage: TWO TABLETS BY MOUTH DAILY
     Route: 048
     Dates: start: 20160412, end: 20160416
  2. COGENTIN [Concomitant]
     Active Substance: BENZTROPINE MESYLATE
     Indication: MUSCLE TWITCHING
     Dosage: 5MG BY MOUTH ONCE DAILY
     Route: 048
     Dates: start: 2014
  3. LASIX [Concomitant]
     Active Substance: FUROSEMIDE
     Indication: FLUID RETENTION
     Dosage: 20MG BY MOUTH AS NEEDED
     Route: 048
  4. CREON [Concomitant]
     Active Substance: PANCRELIPASE AMYLASE\PANCRELIPASE LIPASE\PANCRELIPASE PROTEASE
     Indication: PANCREATIC DISORDER
     Dosage: ONE CAPSULE BY MOUTH THREE TIMES A DAY
     Route: 048
  5. ZOFRAN [Concomitant]
     Active Substance: ONDANSETRON HYDROCHLORIDE
     Indication: NAUSEA
     Dosage: 8MG BY MOUTH AS NEEDED
     Route: 048
     Dates: start: 2014
  6. ATIVAN [Concomitant]
     Active Substance: LORAZEPAM
     Indication: ANXIETY
     Dosage: LMG BY MOUTH THREE TIMES A DAY
     Route: 048
     Dates: start: 2011
  7. ASPIRIN. [Suspect]
     Active Substance: ASPIRIN
     Indication: MYOCARDIAL INFARCTION
     Dosage: 325MG BY MOUTH ONCE DAILY
     Dates: start: 2009
  8. LOMOTIL (LOPERAMIDE HYDROCHLORIDE) [Concomitant]
     Indication: DIARRHOEA
     Dosage: UNKNOWN DOSE, BY MOUTH AS NEEDED
     Route: 048
  9. PROTONIX [Concomitant]
     Active Substance: PANTOPRAZOLE SODIUM
     Indication: GASTROOESOPHAGEAL REFLUX DISEASE
     Dosage: ONE TABLET BY MOUTH IN AM, TAKEN FOR SEVERAL YEARS
     Route: 048
  10. KLOR-CON [Concomitant]
     Active Substance: POTASSIUM CHLORIDE
     Indication: ELECTROLYTE SUBSTITUTION THERAPY
     Dosage: M20 BY MOUTH ONCE DAILY
     Route: 048
  11. ARICEPT [Concomitant]
     Active Substance: DONEPEZIL HYDROCHLORIDE
     Indication: MEMORY IMPAIRMENT
     Dosage: LOMG BY MOUTH AT BEDTIME
     Route: 048
     Dates: start: 2014
  12. CALCIUM D3 [Concomitant]
     Active Substance: CALCIUM\CHOLECALCIFEROL
     Indication: BLOOD CALCIUM DECREASED
     Dosage: 1200MG/100C, 2 AT LUNCH
  13. ZETIA [Suspect]
     Active Substance: EZETIMIBE
     Indication: BLOOD CHOLESTEROL
     Dosage: L0MG BY MOUTH AT BEDTIME
     Route: 048
  14. PROAMATINE [Concomitant]
     Active Substance: MIDODRINE HYDROCHLORIDE
     Indication: BLOOD PRESSURE MEASUREMENT
     Dosage: 5MG BY MOUTH THREE TIMES A DAY
     Route: 048
  15. EFFEXOR XR [Concomitant]
     Active Substance: VENLAFAXINE HYDROCHLORIDE
     Indication: DEPRESSION
     Dosage: 75 MG BY MOUTH ONCE DAILY IN AM
     Route: 048

REACTIONS (2)
  - Diarrhoea [Not Recovered/Not Resolved]
  - Nausea [Unknown]

NARRATIVE: CASE EVENT DATE: 201604
